FAERS Safety Report 20408744 (Version 2)
Quarter: 2022Q1

REPORT INFORMATION
  Report Type: Spontaneous
  Country: PT (occurrence: PT)
  Receive Date: 20220201
  Receipt Date: 20220303
  Transmission Date: 20220423
  Serious: Yes (Life-Threatening, Hospitalization, Other)
  Sender: FDA-Public Use
  Company Number: PT-MLMSERVICE-20220113-3315755-1

PATIENT
  Age: 17 Year
  Sex: Male

DRUGS (4)
  1. ALLOPURINOL [Interacting]
     Active Substance: ALLOPURINOL
     Indication: Giant cell myocarditis
  2. AZATHIOPRINE [Interacting]
     Active Substance: AZATHIOPRINE
     Indication: Immunosuppressant drug therapy
  3. PREDNISOLONE [Concomitant]
     Active Substance: PREDNISOLONE
     Indication: Immunosuppressant drug therapy
  4. CYCLOSPORINE [Concomitant]
     Active Substance: CYCLOSPORINE
     Indication: Immunosuppressant drug therapy

REACTIONS (8)
  - Pilonidal cyst [Recovered/Resolved]
  - Blood folate decreased [Recovered/Resolved]
  - C-reactive protein increased [Recovering/Resolving]
  - Drug interaction [Unknown]
  - Tachycardia [Recovered/Resolved]
  - Reticulocyte count increased [Recovered/Resolved]
  - Myelosuppression [Recovered/Resolved]
  - Infection [Recovered/Resolved]
